FAERS Safety Report 24415255 (Version 2)
Quarter: 2024Q4

REPORT INFORMATION
  Report Type: Spontaneous
  Country: US (occurrence: US)
  Receive Date: 20241009
  Receipt Date: 20241106
  Transmission Date: 20250115
  Serious: Yes (Hospitalization)
  Sender: TEVA
  Company Number: US-TEVA-VS-3250856

PATIENT
  Age: 76 Year
  Sex: Male

DRUGS (4)
  1. PREDNISONE [Suspect]
     Active Substance: PREDNISONE
     Indication: Infective scleritis
     Route: 048
  2. VORICONAZOLE [Suspect]
     Active Substance: VORICONAZOLE
     Indication: Infective scleritis
     Route: 048
  3. AMPHOTERICIN B [Concomitant]
     Active Substance: AMPHOTERICIN B
     Indication: Infective scleritis
     Route: 061
  4. TRIAMCINOLONE [Suspect]
     Active Substance: TRIAMCINOLONE
     Indication: Infective scleritis
     Dosage: 40MG/1ML
     Route: 031

REACTIONS (4)
  - Infective scleritis [Recovering/Resolving]
  - Treatment noncompliance [Unknown]
  - Aspergillus infection [Recovering/Resolving]
  - Endophthalmitis [Recovering/Resolving]
